FAERS Safety Report 14920595 (Version 1)
Quarter: 2018Q2

REPORT INFORMATION
  Report Type: Spontaneous
  Country: US (occurrence: US)
  Receive Date: 20180521
  Receipt Date: 20180521
  Transmission Date: 20180711
  Serious: Yes (Hospitalization, Other)
  Sender: FDA-Public Use
  Company Number: US-SHIRE-US201818856

PATIENT

DRUGS (1)
  1. GATTEX [Suspect]
     Active Substance: TEDUGLUTIDE\WATER
     Indication: PRODUCT USED FOR UNKNOWN INDICATION
     Dosage: 0.25 UNIT DOSE, UNK
     Route: 065

REACTIONS (4)
  - Pneumonia [Unknown]
  - Pyrexia [Recovered/Resolved]
  - Hepatic cirrhosis [Unknown]
  - Sepsis [Unknown]

NARRATIVE: CASE EVENT DATE: 20180418
